FAERS Safety Report 9687616 (Version 1)
Quarter: 2013Q4

REPORT INFORMATION
  Report Type: Spontaneous
  Country: US (occurrence: None)
  Receive Date: 20131112
  Receipt Date: 20131112
  Transmission Date: 20140711
  Serious: Yes (Death)
  Sender: FDA-Public Use
  Company Number: PERC20130144

PATIENT
  Age: 30 Year
  Sex: Female

DRUGS (6)
  1. PERCOCET [Suspect]
     Indication: PRODUCT USED FOR UNKNOWN INDICATION
  2. CYCLOBENZAPRINE [Suspect]
     Indication: PRODUCT USED FOR UNKNOWN INDICATION
  3. CARISOPRODOL TABLET 350 MG [Concomitant]
  4. DIAZEPAM (DIAZEPAM) [Concomitant]
  5. MEPROBAMATE (MEPROBAMATE) [Concomitant]
  6. NORDIAZEPAM (NORDAZEPAM) [Concomitant]

REACTIONS (6)
  - Overdose [None]
  - Unresponsive to stimuli [None]
  - Disease complication [None]
  - Hypertensive heart disease [None]
  - Cardiomegaly [None]
  - Toxicologic test abnormal [None]
